FAERS Safety Report 12876662 (Version 1)
Quarter: 2016Q4

REPORT INFORMATION
  Report Type: Spontaneous
  Country: US (occurrence: US)
  Receive Date: 20161024
  Receipt Date: 20161024
  Transmission Date: 20170207
  Serious: Yes (Other)
  Sender: FDA-Public Use
  Company Number: None

PATIENT
  Age: 53 Year
  Sex: Male
  Weight: 111.1 kg

DRUGS (2)
  1. VANCOMYCIN 10 GRAM HOSPIRA [Suspect]
     Active Substance: VANCOMYCIN
     Indication: BURSITIS
     Dosage: VANCOMYCIN 2000MG IV-DL PICC - FREQUENCY Q12
     Route: 042
     Dates: start: 20160716, end: 20160720
  2. VANCOMYCIN 10 GRAM HOSPIRA [Suspect]
     Active Substance: VANCOMYCIN
     Indication: BACTERIAL INFECTION
     Dosage: VANCOMYCIN 2000MG IV-DL PICC - FREQUENCY Q12
     Route: 042
     Dates: start: 20160716, end: 20160720

REACTIONS (7)
  - Chills [None]
  - Therapy change [None]
  - Influenza like illness [None]
  - Pyrexia [None]
  - Fatigue [None]
  - Pain [None]
  - Somnolence [None]

NARRATIVE: CASE EVENT DATE: 20160720
